FAERS Safety Report 8552280-9 (Version None)
Quarter: 2012Q3

REPORT INFORMATION
  Report Type: 
  Country: None (occurrence: None)
  Receive Date: 20120723
  Receipt Date: 20120723
  Transmission Date: 20120928
  Serious: Yes (Other)
  Sender: FDA-Public Use
  Company Number: None

PATIENT
  Sex: Female
  Weight: 90 kg

DRUGS (7)
  1. LACTOBACILLUS [Concomitant]
  2. ESOMEPRAZOLE [Concomitant]
  3. AMLODIPINE [Concomitant]
  4. NITROFURANTOIN [Suspect]
     Indication: URINARY TRACT INFECTION
     Dosage: 100MG BID PO
     Route: 048
     Dates: start: 20120410, end: 20120416
  5. NITROFURANTOIN [Suspect]
     Indication: URINARY TRACT INFECTION
     Dosage: 100MG BID PO
     Route: 048
     Dates: start: 20120615, end: 20120615
  6. ATENOLOL [Concomitant]
  7. SERTRALINE [Concomitant]

REACTIONS (7)
  - CHILLS [None]
  - NAUSEA [None]
  - MALAISE [None]
  - POLLAKIURIA [None]
  - BACK PAIN [None]
  - KLEBSIELLA INFECTION [None]
  - PYREXIA [None]
